FAERS Safety Report 16450466 (Version 1)
Quarter: 2019Q2

REPORT INFORMATION
  Report Type: Spontaneous
  Country: US (occurrence: US)
  Receive Date: 20190509
  Receipt Date: 20190509
  Transmission Date: 20190711
  Serious: Yes (Hospitalization)
  Sender: FDA-Public Use
  Company Number: None

PATIENT
  Age: 81 Year
  Sex: Female
  Weight: 52.4 kg

DRUGS (15)
  1. FENTANYL. [Concomitant]
     Active Substance: FENTANYL
  2. MEDICAL MARIJUANA [Concomitant]
     Active Substance: CANNABIS SATIVA SUBSP. INDICA TOP
  3. AMOXICILLIN. [Concomitant]
     Active Substance: AMOXICILLIN
  4. AZOR [Concomitant]
     Active Substance: AMLODIPINE BESYLATE\OLMESARTAN MEDOXOMIL
  5. LOVASTATIN. [Concomitant]
     Active Substance: LOVASTATIN
  6. LORAZEPAM. [Concomitant]
     Active Substance: LORAZEPAM
  7. LEVOTHYROXINE. [Concomitant]
     Active Substance: LEVOTHYROXINE
  8. CIPROFLOXACIN. [Concomitant]
     Active Substance: CIPROFLOXACIN
  9. MUPIROCIN. [Concomitant]
     Active Substance: MUPIROCIN
  10. BUPROPION XL [Concomitant]
     Active Substance: BUPROPION
  11. STIOLTO RESPIMAT [Concomitant]
     Active Substance: OLODATEROL HYDROCHLORIDE\TIOTROPIUM BROMIDE MONOHYDRATE
  12. COREG CR [Concomitant]
     Active Substance: CARVEDILOL PHOSPHATE
  13. NIVOLUMAB - 240MG [Suspect]
     Active Substance: NIVOLUMAB
     Route: 042
     Dates: start: 20170321, end: 20170627
  14. DELSYM [Concomitant]
     Active Substance: DEXTROMETHORPHAN
  15. PANTOPRAZOLE [Concomitant]
     Active Substance: PANTOPRAZOLE

REACTIONS (2)
  - Fall [None]
  - Hip fracture [None]

NARRATIVE: CASE EVENT DATE: 20170703
